FAERS Safety Report 7736314-7 (Version None)
Quarter: 2011Q3

REPORT INFORMATION
  Report Type: 
  Country: None (occurrence: None)
  Receive Date: 20110817
  Receipt Date: 20100916
  Transmission Date: 20111222
  Serious: No
  Sender: FDA-Public Use
  Company Number: 20097426

PATIENT
  Age: 49 Year
  Sex: Male

DRUGS (3)
  1. MORPHINE [Concomitant]
  2. CLONIDINE [Concomitant]
  3. LIORESAL [Suspect]
     Indication: MUSCLE SPASTICITY
     Dosage: MCG, DAILY, INTRATHECAL
     Route: 037

REACTIONS (1)
  - PAIN [None]
